FAERS Safety Report 8520333-7 (Version None)
Quarter: 2012Q3

REPORT INFORMATION
  Report Type: 
  Country: None (occurrence: None)
  Receive Date: 20120712
  Receipt Date: 20120712
  Transmission Date: 20120928
  Serious: Yes (Other)
  Sender: FDA-Public Use
  Company Number: None

PATIENT
  Sex: Female

DRUGS (1)
  1. ARIMIDEX [Suspect]
     Indication: NEOPLASM MALIGNANT
     Dosage: 1 MG QD ORAL
     Route: 048
     Dates: start: 20110801, end: 20120710

REACTIONS (2)
  - TOOTH FRACTURE [None]
  - BLOOD CALCIUM DECREASED [None]
